FAERS Safety Report 5427567-9 (Version None)
Quarter: 2007Q3

REPORT INFORMATION
  Report Type: 
  Country: None (occurrence: None)
  Receive Date: 20070828
  Receipt Date: 20070817
  Transmission Date: 20080115
  Serious: Yes (Hospitalization)
  Sender: FDA-Public Use
  Company Number: B0478685A

PATIENT
  Age: 60 Year
  Sex: Female

DRUGS (11)
  1. HYCAMTIN [Suspect]
     Indication: OVARIAN CANCER RECURRENT
     Dosage: 2.4MG PER DAY
     Dates: start: 20070507, end: 20070511
  2. ZOFRAN [Suspect]
     Indication: OVARIAN CANCER
     Dosage: 8MG PER DAY
     Route: 042
     Dates: start: 20070507, end: 20070511
  3. GRANOCYTE [Suspect]
     Indication: OVARIAN CANCER
     Dosage: 1INJ PER DAY
     Route: 042
     Dates: start: 20070516, end: 20070520
  4. CORTICOIDS [Concomitant]
     Route: 065
  5. ANTIBIOTICS [Concomitant]
     Route: 065
  6. LESCOL [Concomitant]
     Route: 048
     Dates: end: 20070702
  7. OROCAL D3 [Concomitant]
     Route: 048
  8. SOLU-MEDROL [Concomitant]
     Dosage: 60MG PER DAY
     Route: 042
     Dates: start: 20070507, end: 20070511
  9. ATARAX [Concomitant]
     Dosage: 2TAB PER DAY
     Route: 048
     Dates: start: 20070615
  10. MEDROL [Concomitant]
     Dosage: 48MG PER DAY
     Route: 065
     Dates: start: 20070615, end: 20070619
  11. OMEPRAZOLE [Concomitant]
     Dates: start: 20070615, end: 20070619

REACTIONS (13)
  - ALVEOLITIS [None]
  - ANAEMIA [None]
  - AREFLEXIA [None]
  - DROP ATTACKS [None]
  - DYSPNOEA [None]
  - HYPOXIA [None]
  - INFLAMMATION [None]
  - INTERSTITIAL LUNG DISEASE [None]
  - LUNG INFILTRATION [None]
  - NEURALGIA [None]
  - PYELONEPHRITIS [None]
  - PYREXIA [None]
  - SENSORY DISTURBANCE [None]
